FAERS Safety Report 21359356 (Version 3)
Quarter: 2023Q2

REPORT INFORMATION
  Report Type: Spontaneous
  Country: US (occurrence: US)
  Receive Date: 20220921
  Receipt Date: 20230516
  Transmission Date: 20230722
  Serious: No
  Sender: FDA-Public Use
  Company Number: US-BEH-2022149648

PATIENT
  Age: 61 Year
  Sex: Female

DRUGS (29)
  1. HIZENTRA [Suspect]
     Active Substance: HUMAN IMMUNOGLOBULIN G
     Indication: Immunodeficiency common variable
     Dosage: 14 GRAM, QOW
     Route: 058
     Dates: start: 20220819
  2. HIZENTRA [Suspect]
     Active Substance: HUMAN IMMUNOGLOBULIN G
     Indication: Primary immunodeficiency syndrome
     Dosage: UNK, QW
     Route: 058
  3. ABILIFY [Concomitant]
     Active Substance: ARIPIPRAZOLE
  4. AMITRIPTYLINE [Concomitant]
     Active Substance: AMITRIPTYLINE
  5. ATACAND [Concomitant]
     Active Substance: CANDESARTAN CILEXETIL
  6. ATENOLOL [Concomitant]
     Active Substance: ATENOLOL
  7. BACLOFEN [Concomitant]
     Active Substance: BACLOFEN
  8. ASPIRIN [Concomitant]
     Active Substance: ASPIRIN
  9. BENADRYL [Concomitant]
     Active Substance: DIPHENHYDRAMINE HYDROCHLORIDE
  10. CONCERTA [Concomitant]
     Active Substance: METHYLPHENIDATE HYDROCHLORIDE
  11. CREON [Concomitant]
     Active Substance: PANCRELIPASE AMYLASE\PANCRELIPASE LIPASE\PANCRELIPASE PROTEASE
  12. ESTRADIOL [Concomitant]
     Active Substance: ESTRADIOL
  13. FLONASE [Concomitant]
     Active Substance: FLUTICASONE PROPIONATE
  14. FROVA [Concomitant]
     Active Substance: FROVATRIPTAN SUCCINATE
  15. LASIX [Concomitant]
     Active Substance: FUROSEMIDE
  16. LEXAPRO [Concomitant]
     Active Substance: ESCITALOPRAM OXALATE
  17. LIDOCAINE\PRILOCAINE [Concomitant]
     Active Substance: LIDOCAINE\PRILOCAINE
  18. MUCINEX [Concomitant]
     Active Substance: GUAIFENESIN
  19. PATANOL [Concomitant]
     Active Substance: OLOPATADINE HYDROCHLORIDE
  20. PEPCID AC [Concomitant]
     Active Substance: FAMOTIDINE
  21. POTASSIUM CHLORIDE [Concomitant]
     Active Substance: POTASSIUM CHLORIDE
  22. PROBIOTICS NOS [Concomitant]
     Active Substance: PROBIOTICS NOS
  23. PROMETRIUM [Concomitant]
     Active Substance: PROGESTERONE
  24. SYNTHROID [Concomitant]
     Active Substance: LEVOTHYROXINE SODIUM
  25. TUMS CHEWIES [Concomitant]
  26. TYLENOL [Concomitant]
     Active Substance: ACETAMINOPHEN
  27. XANAX [Concomitant]
     Active Substance: ALPRAZOLAM
  28. XIFAXAN [Concomitant]
     Active Substance: RIFAXIMIN
  29. ZYRTEC [Concomitant]
     Active Substance: CETIRIZINE HYDROCHLORIDE

REACTIONS (5)
  - Headache [Recovering/Resolving]
  - Migraine [Unknown]
  - No adverse event [Unknown]
  - Treatment delayed [Unknown]
  - Product supply issue [Unknown]
